FAERS Safety Report 16061566 (Version 2)
Quarter: 2019Q2

REPORT INFORMATION
  Report Type: Spontaneous
  Country: GB (occurrence: GB)
  Receive Date: 20190312
  Receipt Date: 20190412
  Transmission Date: 20190711
  Serious: Yes (Other)
  Sender: FDA-Public Use
  Company Number: PHHY2019GB049299

PATIENT
  Age: 72 Year
  Sex: Male

DRUGS (3)
  1. IMATINIB. [Suspect]
     Active Substance: IMATINIB MESYLATE
     Indication: GASTROINTESTINAL STROMAL TUMOUR
     Dosage: 200 MG, QD
     Route: 065
  2. IMATINIB. [Suspect]
     Active Substance: IMATINIB MESYLATE
     Dosage: 300 MG, QD
     Route: 065
  3. IMATINIB. [Suspect]
     Active Substance: IMATINIB MESYLATE
     Dosage: 400 MG, QD (AFTER 6 MONTHS)
     Route: 065

REACTIONS (4)
  - Lung infiltration [Unknown]
  - Bronchopulmonary aspergillosis [Recovered/Resolved]
  - Lung abscess [Unknown]
  - Aspergillus infection [Recovered/Resolved]
